FAERS Safety Report 6228299-X (Version None)
Quarter: 2009Q2

REPORT INFORMATION
  Report Type: 
  Country: None (occurrence: None)
  Receive Date: 20090612
  Receipt Date: 20090604
  Transmission Date: 20091009
  Serious: Yes (Other)
  Sender: FDA-Public Use
  Company Number: PHHY2009PT21803

PATIENT
  Age: 77 Year
  Sex: Female

DRUGS (3)
  1. ACLASTA [Suspect]
     Indication: OSTEOPOROSIS
     Dosage: UNK
     Route: 042
     Dates: start: 20090501
  2. COAPROVEL [Concomitant]
     Indication: HYPERTENSION
  3. PERINDOPRIL ERBUMINE [Concomitant]
     Indication: HYPERTENSION
     Dosage: UNK

REACTIONS (2)
  - HYPOTENSION [None]
  - SYNCOPE [None]
